FAERS Safety Report 25054937 (Version 1)
Quarter: 2025Q1

REPORT INFORMATION
  Report Type: Report from Study
  Country: US (occurrence: US)
  Receive Date: 20250308
  Receipt Date: 20250308
  Transmission Date: 20250409
  Serious: Yes (Other)
  Sender: ROCHE
  Company Number: US-ROCHE-10000222942

PATIENT
  Age: 77 Year
  Sex: Female

DRUGS (1)
  1. ACTEMRA [Suspect]
     Active Substance: TOCILIZUMAB
     Indication: Felty^s syndrome
     Dosage: INFUSE 400MG INTRAVENOUSLY EVERY 4 WEEK(S)
     Route: 042

REACTIONS (3)
  - Lung neoplasm malignant [Unknown]
  - Malaise [Unknown]
  - Illness [Unknown]
